FAERS Safety Report 10204990 (Version 2)
Quarter: 2014Q2

REPORT INFORMATION
  Report Type: Spontaneous
  Country: US (occurrence: US)
  Receive Date: 20140529
  Receipt Date: 20140529
  Transmission Date: 20141212
  Serious: Yes (Hospitalization, Other)
  Sender: FDA-Public Use
  Company Number: US-US-EMD SERONO, INC.-233199J08USA

PATIENT
  Age: 31 Year
  Sex: Female

DRUGS (6)
  1. REBIF [Suspect]
     Indication: MULTIPLE SCLEROSIS
     Route: 058
     Dates: start: 2004, end: 2006
  2. REBIF [Suspect]
     Route: 058
     Dates: start: 20061019
  3. GABAPENTIN [Concomitant]
     Indication: CONVULSION
     Route: 048
  4. DILANTIN [Concomitant]
     Indication: CONVULSION
     Route: 048
  5. MIDRIN [Concomitant]
     Indication: HEADACHE
  6. ULTRAM [Concomitant]
     Indication: PAIN

REACTIONS (5)
  - Deep vein thrombosis [Recovered/Resolved]
  - Abortion spontaneous [Recovered/Resolved]
  - Fall [Unknown]
  - Optic neuritis [Recovering/Resolving]
  - Maternal exposure timing unspecified [Recovered/Resolved]
